FAERS Safety Report 10662492 (Version 1)
Quarter: 2014Q4

REPORT INFORMATION
  Report Type: Report from Study
  Country: MX (occurrence: MX)
  Receive Date: 20141218
  Receipt Date: 20141218
  Transmission Date: 20150529
  Serious: Yes (Other)
  Sender: FDA-Public Use
  Company Number: PHHY2014MX162369

PATIENT
  Sex: Male

DRUGS (3)
  1. ULTIBRO BREEZHALER [Suspect]
     Active Substance: GLYCOPYRRONIUM\INDACATEROL
     Indication: COUGH
     Dosage: 1 DF (110/50UG), QD
     Route: 065
     Dates: start: 20141111, end: 20141116
  2. SEEBRI BREEZHALER [Suspect]
     Active Substance: GLYCOPYRROLATE
     Indication: PRODUCT USED FOR UNKNOWN INDICATION
     Dosage: 50 UG, UNK
     Route: 065
     Dates: start: 20141116
  3. ULTIBRO BREEZHALER [Suspect]
     Active Substance: GLYCOPYRRONIUM\INDACATEROL
     Indication: OFF LABEL USE

REACTIONS (8)
  - Discomfort [Unknown]
  - Product use issue [Unknown]
  - Visual impairment [Not Recovered/Not Resolved]
  - Cough [Not Recovered/Not Resolved]
  - Feeling abnormal [Unknown]
  - Prostatitis [Recovering/Resolving]
  - Gastritis [Not Recovered/Not Resolved]
  - Dysuria [Recovered/Resolved]
